FAERS Safety Report 7640022-0 (Version None)
Quarter: 2011Q3

REPORT INFORMATION
  Report Type: 
  Country: None (occurrence: None)
  Receive Date: 20110727
  Receipt Date: 20110721
  Transmission Date: 20111222
  Serious: Yes (Other)
  Sender: FDA-Public Use
  Company Number: KR-MERCK-1107KOR00031

PATIENT
  Age: 70 Year
  Sex: Female

DRUGS (4)
  1. LOSARTAN POTASSIUM [Concomitant]
     Indication: HYPERTENSION
     Route: 048
     Dates: start: 20110101
  2. HYZAAR [Suspect]
     Indication: HYPERTENSION
     Route: 048
     Dates: start: 20080101, end: 20110101
  3. LOSARTAN POTASSIUM [Concomitant]
     Route: 048
     Dates: start: 20110101, end: 20110101
  4. HYZAAR [Suspect]
     Route: 048
     Dates: start: 20110101, end: 20110101

REACTIONS (2)
  - COLORECTAL CANCER [None]
  - INTENTIONAL DRUG MISUSE [None]
